FAERS Safety Report 10196787 (Version 1)
Quarter: 2014Q2

REPORT INFORMATION
  Report Type: Spontaneous
  Country: US (occurrence: None)
  Receive Date: 20140523
  Receipt Date: 20140523
  Transmission Date: 20141212
  Serious: Yes (Death)
  Sender: FDA-Public Use
  Company Number: None

PATIENT
  Age: 50 Year
  Sex: Male
  Weight: 109 kg

DRUGS (3)
  1. PACLITAXEL [Suspect]
     Indication: NEOPLASM MALIGNANT
  2. METHYLPREDNISOLONE SODIUM SUCCINATE [Concomitant]
  3. IPILIMUMAB [Concomitant]

REACTIONS (6)
  - Malaise [None]
  - Respiratory distress [None]
  - Paraesthesia [None]
  - Cardio-respiratory arrest [None]
  - Hypoxia [None]
  - Pulseless electrical activity [None]
